FAERS Safety Report 9522503 (Version 2)
Quarter: 2013Q3

REPORT INFORMATION
  Report Type: Spontaneous
  Country: FR (occurrence: None)
  Receive Date: 20130903
  Receipt Date: 20130909
  Transmission Date: 20140515
  Serious: Yes (Hospitalization)
  Sender: FDA-Public Use
  Company Number: 2013037665

PATIENT
  Age: 10 Year
  Sex: Male

DRUGS (5)
  1. PRIVIGEN (IMMUNE GLOBULIN INTRAVENOUS (HUMAN) 10% LIQUID) [Suspect]
     Indication: KAWASAKI^S DISEASE
     Dosage: 2 G/KG, INTRAVENOUS
     Route: 042
     Dates: start: 20130627, end: 20130627
  2. AUGMENTIN (AUGMENTIN /00756801) [Suspect]
     Route: 042
     Dates: start: 20130625, end: 20130626
  3. AMOXICILLINE ACIDE CLAVULANIQUE SANDOZ [Suspect]
     Route: 048
     Dates: start: 20130626, end: 20130627
  4. ASPEGIC [Suspect]
     Indication: KAWASAKI^S DISEASE
     Route: 048
     Dates: start: 20130627
  5. RULID [Suspect]
     Route: 048
     Dates: start: 20130626, end: 20130702

REACTIONS (5)
  - Haemolytic anaemia [None]
  - Off label use [None]
  - Leukocytosis [None]
  - Coombs test positive [None]
  - Cardiac murmur [None]
